FAERS Safety Report 10274411 (Version 2)
Quarter: 2014Q3

REPORT INFORMATION
  Report Type: Report from Study
  Country: GR (occurrence: GR)
  Receive Date: 20140702
  Receipt Date: 20140725
  Transmission Date: 20150326
  Serious: Yes (Death)
  Sender: FDA-Public Use
  Company Number: GR-ASTELLAS-2014EU009096

PATIENT
  Age: 72 Year
  Sex: Male

DRUGS (9)
  1. MICAFUNGIN [Suspect]
     Active Substance: MICAFUNGIN
     Indication: PROPHYLAXIS
     Route: 042
     Dates: start: 20140120, end: 20140124
  2. PULMICORT TURBUHALER [Concomitant]
     Active Substance: BUDESONIDE
     Indication: RESPIRATORY DISORDER
     Route: 055
     Dates: start: 20140120, end: 20140204
  3. TAZOCIN [Concomitant]
     Active Substance: PIPERACILLIN SODIUM\TAZOBACTAM SODIUM
     Indication: PROPHYLAXIS
     Route: 042
     Dates: start: 20140120, end: 20140204
  4. AVELOX                             /01278901/ [Concomitant]
     Indication: PROPHYLAXIS
     Dosage: UNK UNK, ONCE DAILY
     Route: 042
     Dates: start: 20140120, end: 20140204
  5. MICAFUNGIN [Suspect]
     Active Substance: MICAFUNGIN
     Indication: PROPHYLAXIS
     Route: 042
     Dates: start: 20140125, end: 20140203
  6. LORDIN                             /00661202/ [Concomitant]
     Indication: PROPHYLAXIS
     Route: 042
     Dates: start: 20140120, end: 20140203
  7. ATROVENT [Concomitant]
     Active Substance: IPRATROPIUM BROMIDE
     Indication: LUNG DISORDER
     Dosage: 500 MCG/2 ML ,ONCE DAILY
     Route: 055
     Dates: start: 20140120, end: 20140204
  8. ALDUMIN [Concomitant]
     Indication: SUPPLEMENTATION THERAPY
     Route: 042
     Dates: start: 20140120, end: 20140203
  9. LASIX [Concomitant]
     Active Substance: FUROSEMIDE
     Indication: CARDIAC DISORDER
     Route: 042
     Dates: start: 20140120, end: 20140203

REACTIONS (1)
  - Multi-organ failure [Fatal]

NARRATIVE: CASE EVENT DATE: 20140204
